FAERS Safety Report 5907193-5 (Version None)
Quarter: 2008Q3

REPORT INFORMATION
  Report Type: 
  Country: None (occurrence: None)
  Receive Date: 20080930
  Receipt Date: 20080918
  Transmission Date: 20090109
  Serious: Yes (Other)
  Sender: FDA-Public Use
  Company Number: 034079

PATIENT
  Age: 30 Year
  Sex: Female
  Weight: 64.4 kg

DRUGS (2)
  1. PLAN B [Suspect]
     Indication: CONTRACEPTION
     Dosage: 1 TABLET, Q12HR, ORAL
     Route: 048
     Dates: start: 20080825, end: 20080826
  2. PHENTERMINE [Concomitant]

REACTIONS (6)
  - ABDOMINAL PAIN [None]
  - ABORTION SPONTANEOUS [None]
  - DRUG EXPOSURE DURING PREGNANCY [None]
  - STRESS [None]
  - UNINTENDED PREGNANCY [None]
  - UTERINE HAEMORRHAGE [None]
